FAERS Safety Report 8455476-X (Version None)
Quarter: 2012Q2

REPORT INFORMATION
  Report Type: 
  Country: None (occurrence: None)
  Receive Date: 20120613
  Receipt Date: 20120604
  Transmission Date: 20120825
  Serious: No
  Sender: FDA-Public Use
  Company Number: A0980835A

PATIENT

DRUGS (4)
  1. MARAVIROC [Suspect]
     Indication: HIV INFECTION
  2. RITONAVIR [Concomitant]
  3. DARUNAVIR HYDRATE [Concomitant]
  4. RALTEGRAVIR [Concomitant]

REACTIONS (1)
  - CHOLESTASIS [None]
